FAERS Safety Report 9235692 (Version 1)
Quarter: 2013Q2

REPORT INFORMATION
  Report Type: Spontaneous
  Country: US (occurrence: None)
  Receive Date: 20130416
  Receipt Date: 20130416
  Transmission Date: 20140414
  Serious: Yes (Other)
  Sender: FDA-Public Use
  Company Number: None

PATIENT
  Age: 29 Year
  Sex: Male
  Weight: 201.4 kg

DRUGS (1)
  1. DEPAKOTE [Suspect]
     Dosage: HIGH DOSE QD

REACTIONS (1)
  - Weight increased [None]
